FAERS Safety Report 9731149 (Version 3)
Quarter: 2014Q2

REPORT INFORMATION
  Report Type: Spontaneous
  Country: JP (occurrence: JP)
  Receive Date: 20131203
  Receipt Date: 20140626
  Transmission Date: 20141212
  Serious: Yes (Hospitalization, Other)
  Sender: FDA-Public Use
  Company Number: JP-JNJFOC-20131118171

PATIENT
  Age: 70 Year
  Sex: Female
  Weight: 41 kg

DRUGS (15)
  1. GOLIMUMAB [Suspect]
     Indication: RHEUMATOID ARTHRITIS
     Route: 058
     Dates: start: 20130319, end: 20130319
  2. GOLIMUMAB [Suspect]
     Indication: RHEUMATOID ARTHRITIS
     Route: 058
     Dates: start: 20130417, end: 20130417
  3. GOLIMUMAB [Suspect]
     Indication: RHEUMATOID ARTHRITIS
     Route: 058
     Dates: start: 20130219, end: 20130219
  4. GOLIMUMAB [Suspect]
     Indication: RHEUMATOID ARTHRITIS
     Route: 058
     Dates: start: 20130122, end: 20130122
  5. GOLIMUMAB [Suspect]
     Indication: RHEUMATOID ARTHRITIS
     Route: 058
     Dates: start: 20121225, end: 20121225
  6. GOLIMUMAB [Suspect]
     Indication: RHEUMATOID ARTHRITIS
     Route: 058
     Dates: start: 20121127, end: 20121127
  7. GOLIMUMAB [Suspect]
     Indication: RHEUMATOID ARTHRITIS
     Route: 058
     Dates: start: 20121030, end: 20121030
  8. GOLIMUMAB [Suspect]
     Indication: RHEUMATOID ARTHRITIS
     Route: 058
     Dates: start: 20130724, end: 20130724
  9. GOLIMUMAB [Suspect]
     Indication: RHEUMATOID ARTHRITIS
     Route: 058
     Dates: start: 20130919, end: 20130919
  10. METHOTREXATE [Concomitant]
     Indication: RHEUMATOID ARTHRITIS
     Route: 048
  11. LOXONIN [Concomitant]
     Indication: RHEUMATOID ARTHRITIS
     Route: 062
  12. FOLIAMIN [Concomitant]
     Indication: PROPHYLAXIS
     Route: 065
  13. PATANOL [Concomitant]
     Indication: CONJUNCTIVITIS ALLERGIC
     Route: 031
  14. HYALEIN [Concomitant]
     Indication: DRY EYE
     Route: 031
  15. TAFLUPROST [Concomitant]
     Indication: GLAUCOMA
     Route: 031

REACTIONS (3)
  - Ileus [Recovering/Resolving]
  - Intestinal perforation [Recovering/Resolving]
  - Squamous cell carcinoma of the vagina [Recovered/Resolved]
